FAERS Safety Report 10731022 (Version 5)
Quarter: 2016Q4

REPORT INFORMATION
  Report Type: Spontaneous
  Country: US (occurrence: US)
  Receive Date: 20150122
  Receipt Date: 20161227
  Transmission Date: 20170206
  Serious: No
  Sender: FDA-Public Use
  Company Number: US-PFIZER INC-2015021763

PATIENT
  Age: 58 Year
  Sex: Female
  Weight: 87 kg

DRUGS (2)
  1. LYRICA [Suspect]
     Active Substance: PREGABALIN
     Indication: NEUROPATHY PERIPHERAL
     Dosage: 50 MG, 3X/DAY (EVERY 8 HOURS)
     Route: 048
     Dates: start: 20150108, end: 20150114
  2. LYRICA [Suspect]
     Active Substance: PREGABALIN
     Indication: NEURALGIA
     Dosage: 150 MG, 3X/DAY (EVERY 8 HOURS)
     Route: 048

REACTIONS (1)
  - Drug ineffective [Unknown]
